FAERS Safety Report 4812122-1 (Version None)
Quarter: 2005Q4

REPORT INFORMATION
  Report Type: 
  Country: None (occurrence: None)
  Receive Date: 20051028
  Receipt Date: 20040322
  Transmission Date: 20060501
  Serious: No
  Sender: FDA-Public Use
  Company Number: US-GLAXOSMITHKLINE-A0503832A

PATIENT
  Age: 73 Year
  Sex: Male

DRUGS (6)
  1. ADVAIR DISKUS 100/50 [Suspect]
     Indication: ASTHMA
     Dosage: 1PUFF TWICE PER DAY
     Route: 055
     Dates: end: 20040318
  2. ALBUTEROL [Concomitant]
  3. AVAPRO [Concomitant]
  4. THYROID TAB [Concomitant]
  5. BENADRYL [Concomitant]
  6. TOPAMAX [Concomitant]

REACTIONS (4)
  - DIZZINESS [None]
  - DYSPNOEA [None]
  - FEELING HOT [None]
  - WHEEZING [None]
